FAERS Safety Report 8484693-8 (Version None)
Quarter: 2012Q3

REPORT INFORMATION
  Report Type: 
  Country: None (occurrence: None)
  Receive Date: 20120703
  Receipt Date: 20120507
  Transmission Date: 20120928
  Serious: No
  Sender: FDA-Public Use
  Company Number: US-TEVA-336358USA

PATIENT
  Sex: Female

DRUGS (2)
  1. ANTIDEPRESSANT (NOS) [Concomitant]
  2. NUVIGIL [Suspect]
     Dosage: 250 MILLIGRAM;
     Route: 048
     Dates: start: 20120301

REACTIONS (2)
  - MALABSORPTION [None]
  - VISION BLURRED [None]
